FAERS Safety Report 12624679 (Version 2)
Quarter: 2016Q3

REPORT INFORMATION
  Report Type: Spontaneous
  Country: US (occurrence: US)
  Receive Date: 20160805
  Receipt Date: 20160831
  Transmission Date: 20161109
  Serious: No
  Sender: FDA-Public Use
  Company Number: US-PFIZER INC-2016338392

PATIENT
  Sex: Female

DRUGS (3)
  1. NITROSTAT [Suspect]
     Active Substance: NITROGLYCERIN
     Dosage: UNK
  2. NITROSTAT [Suspect]
     Active Substance: NITROGLYCERIN
     Dosage: UNK
  3. NITROSTAT [Suspect]
     Active Substance: NITROGLYCERIN
     Dosage: UNK

REACTIONS (1)
  - Drug ineffective [Unknown]
